FAERS Safety Report 23274597 (Version 2)
Quarter: 2024Q1

REPORT INFORMATION
  Report Type: Other
  Country: PY (occurrence: None)
  Receive Date: 20231208
  Receipt Date: 20240103
  Transmission Date: 20240410
  Serious: No
  Sender: FDA-Public Use
  Company Number: PY-ROCHE-3468718

PATIENT
  Age: 21 Year
  Sex: Female

DRUGS (1)
  1. ACTEMRA [Suspect]
     Active Substance: TOCILIZUMAB
     Indication: Rheumatoid arthritis
     Dosage: INJECTABLE SOLUTION 162MG/0.9ML
     Route: 058
     Dates: start: 20230413

REACTIONS (1)
  - Ovarian cyst [Recovering/Resolving]

NARRATIVE: CASE EVENT DATE: 20231125
